FAERS Safety Report 20017422 (Version 1)
Quarter: 2021Q4

REPORT INFORMATION
  Report Type: Report from Study
  Country: US (occurrence: US)
  Receive Date: 20211030
  Receipt Date: 20211030
  Transmission Date: 20220303
  Serious: No
  Sender: FDA-Public Use
  Company Number: US-NOVARTISTESTPH-NVSC2021US248964

PATIENT
  Sex: Female

DRUGS (1)
  1. KESIMPTA [Suspect]
     Active Substance: OFATUMUMAB
     Indication: Multiple sclerosis
     Dosage: UNK
     Route: 058
     Dates: start: 20211007

REACTIONS (7)
  - Pain in extremity [Unknown]
  - Energy increased [Recovering/Resolving]
  - Hypoaesthesia [Unknown]
  - Headache [Recovering/Resolving]
  - Cough [Not Recovered/Not Resolved]
  - Burning sensation [Unknown]
  - Pain [Unknown]
